FAERS Safety Report 24693006 (Version 2)
Quarter: 2024Q4

REPORT INFORMATION
  Report Type: Report from Study
  Country: US (occurrence: US)
  Receive Date: 20241203
  Receipt Date: 20241203
  Transmission Date: 20250115
  Serious: Yes (Other)
  Sender: ALEXION PHARMACEUTICALS
  Company Number: US-AstraZeneca-CH-00755362A

PATIENT

DRUGS (4)
  1. DAPAGLIFLOZIN [Suspect]
     Active Substance: DAPAGLIFLOZIN
     Dosage: TAKE 1 TAB ORALLY ONCE PER DAY FOR 30 DAYS
  2. DAPAGLIFLOZIN [Suspect]
     Active Substance: DAPAGLIFLOZIN
     Dosage: TAKE 1 TAB ORALLY ONCE PER DAY FOR 30 DAYS
  3. DAPAGLIFLOZIN [Suspect]
     Active Substance: DAPAGLIFLOZIN
     Dosage: TAKE 1 TAB ORALLY ONCE PER DAY FOR 30 DAYS
  4. DAPAGLIFLOZIN [Suspect]
     Active Substance: DAPAGLIFLOZIN
     Dosage: TAKE 1 TAB ORALLY ONCE PER DAY FOR 30 DAYS

REACTIONS (1)
  - Cardiac failure [Unknown]
